FAERS Safety Report 24038570 (Version 1)
Quarter: 2024Q3

REPORT INFORMATION
  Report Type: Spontaneous
  Country: IN (occurrence: IN)
  Receive Date: 20240702
  Receipt Date: 20240702
  Transmission Date: 20241016
  Serious: Yes (Death)
  Sender: ROCHE
  Company Number: IN-ROCHE-3537976

PATIENT
  Age: 60 Year
  Sex: Male

DRUGS (1)
  1. POLIVY [Suspect]
     Active Substance: POLATUZUMAB VEDOTIN-PIIQ
     Indication: Non-Hodgkin^s lymphoma
     Dosage: ONGOING- YES
     Route: 042
     Dates: start: 20240402

REACTIONS (3)
  - Off label use [Unknown]
  - Off label use [Fatal]
  - Multiple organ dysfunction syndrome [Fatal]
